FAERS Safety Report 7476750-X (Version None)
Quarter: 2011Q2

REPORT INFORMATION
  Report Type: 
  Country: None (occurrence: None)
  Receive Date: 20110512
  Receipt Date: 20110503
  Transmission Date: 20111010
  Serious: Yes (Hospitalization)
  Sender: FDA-Public Use
  Company Number: US-BAXTER-2011BH011546

PATIENT
  Age: 8 Month
  Sex: Male

DRUGS (2)
  1. DIANEAL [Suspect]
     Indication: OFF LABEL USE
     Route: 033
  2. DIANEAL [Suspect]
     Indication: PERITONEAL DIALYSIS
     Route: 033

REACTIONS (2)
  - URINARY TRACT INFECTION [None]
  - RESPIRATORY SYNCYTIAL VIRUS INFECTION [None]
